FAERS Safety Report 8671852 (Version 3)
Quarter: 2013Q3

REPORT INFORMATION
  Report Type: Spontaneous
  Country: US (occurrence: US)
  Receive Date: 20120718
  Receipt Date: 20130718
  Transmission Date: 20140515
  Serious: No
  Sender: FDA-Public Use
  Company Number: US-ASTRAZENECA-2011SE56538

PATIENT
  Age: 78 Year
  Sex: Female

DRUGS (4)
  1. NEXIUM [Suspect]
     Route: 048
  2. NEXIUM [Suspect]
     Route: 048
  3. TOPROL XL [Suspect]
     Route: 048
  4. CRESTOR [Suspect]
     Route: 048

REACTIONS (5)
  - Hearing impaired [Unknown]
  - Hypertension [Unknown]
  - Amnesia [Unknown]
  - Intentional drug misuse [Unknown]
  - Drug dose omission [Unknown]
